FAERS Safety Report 7125274-8 (Version None)
Quarter: 2010Q4

REPORT INFORMATION
  Report Type: 
  Country: None (occurrence: None)
  Receive Date: 20101129
  Receipt Date: 20101115
  Transmission Date: 20110411
  Serious: Yes (Hospitalization, Other)
  Sender: FDA-Public Use
  Company Number: PHHY2010FR74475

PATIENT
  Sex: Male

DRUGS (6)
  1. AFINITOR [Suspect]
     Indication: RENAL CANCER METASTATIC
     Dosage: 10 MG, QD
     Route: 048
     Dates: start: 20100822, end: 20101028
  2. AFINITOR [Suspect]
     Indication: METASTASES TO LUNG
  3. LERCANIDIPINE [Concomitant]
     Indication: HYPERTENSION
     Dosage: 1 DF, QD
     Route: 048
  4. CANDESARTAN CILEXETIL W/HYDROCHLOROTHIAZIDE [Concomitant]
     Indication: HYPERTENSION
     Dosage: 1 DF, QD
     Route: 048
  5. HYDROCORTISONE [Concomitant]
     Indication: ADRENAL DISORDER
     Dosage: 40 MG, QD
     Route: 048
  6. PARACETAMOL [Concomitant]
     Dosage: UNK
     Route: 048

REACTIONS (10)
  - ASCITES [None]
  - BLOOD ALBUMIN DECREASED [None]
  - BLOOD TRIGLYCERIDES INCREASED [None]
  - CAPILLARY LEAK SYNDROME [None]
  - FACE OEDEMA [None]
  - GENERALISED OEDEMA [None]
  - OEDEMA PERIPHERAL [None]
  - PLEURISY [None]
  - PROTEINURIA [None]
  - WEIGHT INCREASED [None]
